FAERS Safety Report 4389318-9 (Version None)
Quarter: 2004Q3

REPORT INFORMATION
  Report Type: 
  Country: None (occurrence: None)
  Receive Date: 20040702
  Receipt Date: 20040615
  Transmission Date: 20050211
  Serious: Yes (Other)
  Sender: FDA-Public Use
  Company Number: US-ROCHE-371362

PATIENT
  Sex: Female

DRUGS (1)
  1. ROCEPHIN [Suspect]
     Route: 030
     Dates: start: 20040523

REACTIONS (4)
  - BLOOD POTASSIUM DECREASED [None]
  - BONE MARROW DEPRESSION [None]
  - PYREXIA [None]
  - RASH GENERALISED [None]
